FAERS Safety Report 5263571-1 (Version None)
Quarter: 2007Q1

REPORT INFORMATION
  Report Type: 
  Country: None (occurrence: None)
  Receive Date: 20070313
  Receipt Date: 20070228
  Transmission Date: 20070707
  Serious: Yes (Other)
  Sender: FDA-Public Use
  Company Number: PHBS2007KR03971

PATIENT
  Sex: Female

DRUGS (1)
  1. ZOMETA [Suspect]
     Dates: start: 20051014

REACTIONS (5)
  - GINGIVITIS [None]
  - IMPAIRED HEALING [None]
  - OSTEOMYELITIS [None]
  - OSTEONECROSIS [None]
  - TOOTH EXTRACTION [None]
